FAERS Safety Report 10656986 (Version 1)
Quarter: 2014Q4

REPORT INFORMATION
  Report Type: Other
  Country: GB (occurrence: GB)
  Receive Date: 20141217
  Receipt Date: 20141217
  Transmission Date: 20150529
  Serious: Yes (Death, Hospitalization)
  Sender: FDA-Public Use
  Company Number: GB-SUN PHARMACEUTICAL INDUSTRIES LTD-2014SUN02832

PATIENT

DRUGS (5)
  1. CARBOPLATIN 10 MG/ML CONCENTRATE FOR SOLUTION FOR INFUSION [Suspect]
     Active Substance: CARBOPLATIN
     Indication: OVARIAN CANCER
     Dosage: AUC5, 1ST CYCLE
     Route: 042
     Dates: start: 20141009
  2. LISINOPRIL. [Concomitant]
     Active Substance: LISINOPRIL
  3. ALENDRONIC ACID [Concomitant]
     Active Substance: ALENDRONIC ACID
  4. AMLODIPINE [Concomitant]
     Active Substance: AMLODIPINE BESYLATE
  5. COLECALCIFEROL [Concomitant]
     Active Substance: CHOLECALCIFEROL

REACTIONS (17)
  - Bundle branch block left [Unknown]
  - Cardiac failure [Unknown]
  - Heart valve incompetence [Unknown]
  - Pulmonary oedema [Unknown]
  - Acute kidney injury [Unknown]
  - Anaemia [Unknown]
  - Fatigue [Unknown]
  - Nausea [Recovered/Resolved]
  - Myocardial infarction [Fatal]
  - Diarrhoea [Recovered/Resolved]
  - Dyspnoea [Recovering/Resolving]
  - Toxicity to various agents [None]
  - Cardiac murmur [Unknown]
  - Chest discomfort [Unknown]
  - Tachycardia [Unknown]
  - Aortic stenosis [Unknown]
  - Dizziness [Recovered/Resolved]

NARRATIVE: CASE EVENT DATE: 20141029
